FAERS Safety Report 8275275-1 (Version None)
Quarter: 2012Q2

REPORT INFORMATION
  Report Type: 
  Country: None (occurrence: None)
  Receive Date: 20120411
  Receipt Date: 20120406
  Transmission Date: 20120825
  Serious: Yes (Death, Hospitalization)
  Sender: FDA-Public Use
  Company Number: US-PFIZER INC-2008039013

PATIENT
  Sex: Male
  Weight: 234 kg

DRUGS (13)
  1. FLUOROURACIL [Suspect]
     Indication: COLORECTAL CANCER
     Dosage: 889 MG, 1 EVERY 14 DAYS
     Route: 040
     Dates: start: 20080331, end: 20080428
  2. FENTANYL [Concomitant]
     Route: 062
     Dates: start: 20080503, end: 20080507
  3. FLUOROURACIL [Suspect]
     Dosage: 5336 MG, 1 EVERY 14 DAYS
     Route: 041
     Dates: start: 20080331, end: 20080430
  4. MORPHINE [Concomitant]
     Route: 042
     Dates: start: 20080503, end: 20080507
  5. LEUCOVORIN CALCIUM [Suspect]
     Indication: COLORECTAL CANCER
     Dosage: 889 MG, 1 EVERY 14 DAYS
     Route: 042
     Dates: start: 20080331, end: 20080428
  6. METOPROLOL TARTRATE [Concomitant]
     Route: 048
     Dates: start: 20080402
  7. OXALIPLATIN [Suspect]
     Indication: COLORECTAL CANCER
     Dosage: 189 MG, 1 EVERY 14 DAYS
     Route: 042
     Dates: start: 20080331, end: 20080428
  8. AXITINIB [Suspect]
     Indication: COLORECTAL CANCER
     Dosage: 5 MG, 2X/DAY
     Route: 048
     Dates: start: 20080331, end: 20080505
  9. LYRICA [Concomitant]
     Route: 048
     Dates: start: 19970101
  10. CYMBALTA [Concomitant]
     Route: 048
     Dates: start: 19970101
  11. NORCO [Concomitant]
     Route: 048
     Dates: start: 19970101
  12. ATIVAN [Concomitant]
     Route: 048
     Dates: start: 19970101
  13. INSULIN [Concomitant]
     Route: 058
     Dates: start: 20080503, end: 20080507

REACTIONS (3)
  - DEHYDRATION [None]
  - DIARRHOEA [None]
  - CEREBRAL HAEMORRHAGE [None]
